FAERS Safety Report 9354899 (Version 8)
Quarter: 2014Q2

REPORT INFORMATION
  Report Type: Report from Study
  Country: CA (occurrence: CA)
  Receive Date: 20130619
  Receipt Date: 20140626
  Transmission Date: 20141212
  Serious: Yes (Other)
  Sender: FDA-Public Use
  Company Number: CA-ROCHE-1234348

PATIENT
  Age: 52 Year
  Sex: Female
  Weight: 110.7 kg

DRUGS (16)
  1. RITUXAN [Suspect]
     Indication: RHEUMATOID ARTHRITIS
     Dosage: MOST RECENT DOSE RITUXIMAB DOSE WAS ON 30/MAY/2012
     Route: 042
     Dates: start: 20111018, end: 20140605
  2. VIMOVO [Suspect]
     Indication: PRODUCT USED FOR UNKNOWN INDICATION
     Route: 065
     Dates: end: 201206
  3. ASPIRIN [Suspect]
     Indication: PRODUCT USED FOR UNKNOWN INDICATION
     Route: 065
     Dates: end: 201206
  4. ENBREL [Suspect]
     Indication: PRODUCT USED FOR UNKNOWN INDICATION
     Route: 065
  5. BENADRYL (CANADA) [Suspect]
     Indication: PRODUCT USED FOR UNKNOWN INDICATION
     Route: 065
  6. REACTINE (CANADA) [Suspect]
     Indication: PRODUCT USED FOR UNKNOWN INDICATION
     Route: 065
  7. MEDROL [Concomitant]
  8. CYMBALTA [Concomitant]
  9. ATENOLOL [Concomitant]
  10. PREVACID [Concomitant]
     Dosage: DISCONTINUED ON UNKNOWN DATE
     Route: 065
  11. ZOPICLONE [Concomitant]
     Indication: SLEEP DISORDER
     Dosage: DISCONTINUED ON UNKNOWN DATE
     Route: 065
  12. DIPHENHYDRAMINE HCL [Concomitant]
     Indication: PREMEDICATION
     Route: 048
     Dates: start: 20111018
  13. ACETAMINOPHEN [Concomitant]
     Indication: PREMEDICATION
     Route: 048
     Dates: start: 20111018
  14. METHYLPREDNISOLONE [Concomitant]
     Indication: PREMEDICATION
     Route: 042
     Dates: start: 20111018
  15. VITAMIN E [Concomitant]
  16. CETRIZINE [Concomitant]
     Route: 048
     Dates: start: 20130620

REACTIONS (33)
  - Progressive multifocal leukoencephalopathy [Unknown]
  - Post-traumatic stress disorder [Unknown]
  - Depressed mood [Unknown]
  - Adrenal insufficiency [Not Recovered/Not Resolved]
  - Ulcer [Unknown]
  - Intervertebral discitis [Not Recovered/Not Resolved]
  - Hypotension [Not Recovered/Not Resolved]
  - Neuropathy peripheral [Unknown]
  - Multiple sclerosis [Not Recovered/Not Resolved]
  - Multiple sclerosis [Not Recovered/Not Resolved]
  - Rheumatoid arthritis [Not Recovered/Not Resolved]
  - Pain [Not Recovered/Not Resolved]
  - Hyperhidrosis [Unknown]
  - Dizziness [Unknown]
  - Syncope [Unknown]
  - Nausea [Unknown]
  - Throat irritation [Recovered/Resolved]
  - Cognitive disorder [Not Recovered/Not Resolved]
  - Demyelination [Not Recovered/Not Resolved]
  - Coordination abnormal [Not Recovered/Not Resolved]
  - Electric shock [Not Recovered/Not Resolved]
  - Balance disorder [Not Recovered/Not Resolved]
  - Depression [Not Recovered/Not Resolved]
  - Dry mouth [Not Recovered/Not Resolved]
  - Arthralgia [Not Recovered/Not Resolved]
  - Fatigue [Not Recovered/Not Resolved]
  - Temperature intolerance [Not Recovered/Not Resolved]
  - Throat irritation [Recovered/Resolved]
  - Cough [Recovered/Resolved]
  - Dysphagia [Recovered/Resolved]
  - Urticaria [Not Recovered/Not Resolved]
  - Drug ineffective [Unknown]
  - Infusion related reaction [Recovered/Resolved]
